FAERS Safety Report 5924804-9 (Version None)
Quarter: 2008Q4

REPORT INFORMATION
  Report Type: 
  Country: None (occurrence: None)
  Receive Date: 20081017
  Receipt Date: 20081017
  Transmission Date: 20090506
  Serious: No
  Sender: FDA-Public Use
  Company Number: None

PATIENT

DRUGS (1)
  1. RISPERDAL [Suspect]
     Dosage: ONCE PO BID
     Route: 048

REACTIONS (3)
  - INSOMNIA [None]
  - RESTLESSNESS [None]
  - SCREAMING [None]
